FAERS Safety Report 23873899 (Version 1)
Quarter: 2024Q2

REPORT INFORMATION
  Report Type: Spontaneous
  Country: US (occurrence: US)
  Receive Date: 20240520
  Receipt Date: 20240520
  Transmission Date: 20240716
  Serious: No
  Sender: FDA-Public Use
  Company Number: US-BRISTOL-MYERS SQUIBB COMPANY-2024-077125

PATIENT
  Age: 57 Year
  Sex: Female
  Weight: 79.4 kg

DRUGS (2)
  1. NULOJIX [Suspect]
     Active Substance: BELATACEPT
     Indication: Renal transplant
     Dosage: 397.5 MG EVERY 2 WEEK FOR 5 DOSES AND THEN EVERY 28 DAYS.
     Route: 042
  2. NULOJIX [Suspect]
     Active Substance: BELATACEPT
     Route: 042

REACTIONS (2)
  - Weight fluctuation [Unknown]
  - Off label use [Unknown]
